FAERS Safety Report 8597802-7 (Version None)
Quarter: 2012Q3

REPORT INFORMATION
  Report Type: 
  Country: None (occurrence: None)
  Receive Date: 20120816
  Receipt Date: 20120808
  Transmission Date: 20120928
  Serious: Yes (Other)
  Sender: FDA-Public Use
  Company Number: PHHY2012EC061708

PATIENT
  Sex: Female

DRUGS (4)
  1. VITAMIN B COMPLEX CAP [Concomitant]
  2. ZOLEDRONOC ACID [Suspect]
     Indication: OSTEOPOROSIS
     Dosage: 5MG, STAT
     Route: 042
     Dates: start: 20080101
  3. OMEPRAZOLE [Concomitant]
  4. DIGESTOPAN [Concomitant]

REACTIONS (8)
  - VISUAL IMPAIRMENT [None]
  - DECREASED APPETITE [None]
  - PTERYGIUM [None]
  - FLATULENCE [None]
  - BACK PAIN [None]
  - MUSCULOSKELETAL PAIN [None]
  - PAIN IN EXTREMITY [None]
  - GALLBLADDER DISORDER [None]
